FAERS Safety Report 4477257-4 (Version None)
Quarter: 2004Q4

REPORT INFORMATION
  Report Type: 
  Country: None (occurrence: None)
  Receive Date: 20041018
  Receipt Date: 20040505
  Transmission Date: 20050328
  Serious: No
  Sender: FDA-Public Use
  Company Number: US-GLAXOSMITHKLINE-A0509623A

PATIENT
  Sex: Female

DRUGS (4)
  1. CEFUROXIME AXETIL [Suspect]
     Route: 048
  2. LIPITOR [Concomitant]
  3. ALBUTEROL [Concomitant]
  4. ADVAIR DISKUS 100/50 [Concomitant]

REACTIONS (1)
  - DIARRHOEA [None]
